FAERS Safety Report 5965784-X (Version None)
Quarter: 2008Q4

REPORT INFORMATION
  Report Type: 
  Country: None (occurrence: None)
  Receive Date: 20081125
  Receipt Date: 20081121
  Transmission Date: 20090506
  Serious: Yes (Hospitalization)
  Sender: FDA-Public Use
  Company Number: IT-MERCK-0810ITA00009

PATIENT
  Age: 43 Year
  Sex: Male

DRUGS (4)
  1. ISENTRESS [Suspect]
     Indication: HIV INFECTION
     Route: 048
     Dates: start: 20071206
  2. PREZISTA [Concomitant]
     Route: 048
     Dates: start: 20071206
  3. NORVIR [Concomitant]
     Route: 048
     Dates: start: 20071206
  4. EPIVIR [Concomitant]
     Route: 048
     Dates: start: 20071206

REACTIONS (1)
  - PLASMABLASTIC LYMPHOMA [None]
